FAERS Safety Report 4660179-3 (Version None)
Quarter: 2005Q2

REPORT INFORMATION
  Report Type: 
  Country: None (occurrence: None)
  Receive Date: 20050419
  Receipt Date: 20040629
  Transmission Date: 20051028
  Serious: Yes (Hospitalization)
  Sender: FDA-Public Use
  Company Number: 20040700348

PATIENT
  Age: 53 Year
  Sex: Female

DRUGS (3)
  1. HEPARIN [Suspect]
     Dosage: 20 MG DAILY SC
     Route: 058
     Dates: start: 20031001, end: 20031208
  2. PACLITAXEL [Concomitant]
  3. CARBOPLAIN [Concomitant]

REACTIONS (1)
  - HAEMOPTYSIS [None]
